FAERS Safety Report 12063207 (Version 2)
Quarter: 2016Q1

REPORT INFORMATION
  Report Type: Spontaneous
  Country: FR (occurrence: FR)
  Receive Date: 20160210
  Receipt Date: 20160317
  Transmission Date: 20160526
  Serious: Yes (Hospitalization)
  Sender: FDA-Public Use
  Company Number: FR-SA-2016SA019940

PATIENT
  Age: 86 Year
  Sex: Female

DRUGS (12)
  1. AVLOCARDYL [Concomitant]
     Active Substance: PROPRANOLOL HYDROCHLORIDE
     Dosage: 40 MG TABLETS
  2. TEMESTA [Suspect]
     Active Substance: LORAZEPAM
     Route: 048
     Dates: end: 20160112
  3. FLECTOR [Concomitant]
     Active Substance: DICLOFENAC EPOLAMINE
     Dosage: 1% GEL
  4. INEXIUM [Suspect]
     Active Substance: ESOMEPRAZOLE
     Route: 048
     Dates: end: 20160112
  5. MONOCRIXO [Suspect]
     Active Substance: TRAMADOL HYDROCHLORIDE
     Route: 048
     Dates: end: 20160110
  6. SEROPLEX [Suspect]
     Active Substance: ESCITALOPRAM OXALATE
     Indication: DEPRESSION
     Route: 048
     Dates: end: 20160110
  7. DEDROGYL [Concomitant]
     Active Substance: CALCIFEDIOL
  8. COAPROVEL [Suspect]
     Active Substance: HYDROCHLOROTHIAZIDE\IRBESARTAN
     Indication: HYPERTENSION
     Route: 065
     Dates: end: 201601
  9. LEVOTHYROX [Concomitant]
     Active Substance: LEVOTHYROXINE
     Dosage: 50 MCG TABLETS
  10. CALCIDOSE [Concomitant]
     Active Substance: CALCIUM CARBONATE
  11. TROPHIGIL [Concomitant]
     Active Substance: ESTRIOL
  12. LEXOMIL [Suspect]
     Active Substance: BROMAZEPAM
     Route: 048

REACTIONS (3)
  - Disorientation [Recovered/Resolved]
  - Hyponatraemia [Recovering/Resolving]
  - Depressed level of consciousness [Recovered/Resolved]

NARRATIVE: CASE EVENT DATE: 201504
